FAERS Safety Report 17523519 (Version 1)
Quarter: 2020Q1

REPORT INFORMATION
  Report Type: Spontaneous
  Country: US (occurrence: US)
  Receive Date: 20200311
  Receipt Date: 20200311
  Transmission Date: 20200409
  Serious: No
  Sender: FDA-Public Use
  Company Number: US-TEVA-2020-US-1195551

PATIENT
  Sex: Female
  Weight: 64.92 kg

DRUGS (4)
  1. ADCIRCA [Concomitant]
     Active Substance: TADALAFIL
     Route: 065
  2. WARFARIN [Concomitant]
     Active Substance: WARFARIN
     Route: 065
  3. OPSUMIT [Concomitant]
     Active Substance: MACITENTAN
     Route: 065
  4. EPOPROSTENOL TEVA [Suspect]
     Active Substance: EPOPROSTENOL SODIUM
     Dosage: 25.5 NG PER KG PER MIN?STRENGTH OF DOSAGE FORM: 1.5MG/VIAL
     Route: 065
     Dates: start: 20191014

REACTIONS (2)
  - Dizziness [Unknown]
  - Nausea [Unknown]
